FAERS Safety Report 8846786 (Version 3)
Quarter: 2012Q4

REPORT INFORMATION
  Report Type: 
  Country: US (occurrence: US)
  Receive Date: 20121018
  Receipt Date: 20121219
  Transmission Date: 20130627
  Serious: Yes (Other)
  Sender: FDA-Public Use
  Company Number: US-PFIZER INC-2012257519

PATIENT
  Age: 50 Year
  Sex: Female
  Weight: 74.83 kg

DRUGS (6)
  1. LYRICA [Suspect]
     Indication: FIBROMYALGIA
     Dosage: 75 mg, 4x/day
     Route: 048
  2. LYRICA [Suspect]
     Dosage: 75 mg, 1x/day
     Route: 048
  3. NEXIUM [Concomitant]
     Indication: GASTROESOPHAGEAL REFLUX DISEASE
     Dosage: 40 mg, daily
  4. IBUPROFEN [Concomitant]
     Indication: HAND OSTEOARTHRITIS
     Dosage: 800 mg, as needed
  5. AMITRIPTYLINE HYDROCHLORIDE [Concomitant]
     Indication: ANXIETY
     Dosage: 25 mg, as needed
  6. LEXAPRO [Concomitant]
     Indication: DEPRESSION
     Dosage: 20 mg, daily

REACTIONS (5)
  - Road traffic accident [Unknown]
  - Neck injury [Recovering/Resolving]
  - Limb injury [Recovering/Resolving]
  - Pain [Unknown]
  - Emotional disorder [Unknown]
